FAERS Safety Report 4796343-2 (Version None)
Quarter: 2005Q4

REPORT INFORMATION
  Report Type: 
  Country: None (occurrence: None)
  Receive Date: 20051007
  Receipt Date: 20050930
  Transmission Date: 20060501
  Serious: Yes (Death)
  Sender: FDA-Public Use
  Company Number: LTI2005A00123

PATIENT
  Age: 75 Year
  Sex: Male

DRUGS (11)
  1. ACTOS [Suspect]
     Indication: DIABETES MELLITUS NON-INSULIN-DEPENDENT
     Dosage: 30 MG (30 MG, 1 IN 1 D); ORAL
     Route: 048
     Dates: start: 20050125, end: 20050306
  2. CRESTOR [Suspect]
     Indication: HYPERCHOLESTEROLAEMIA
     Dosage: 10 MG (10 MG, 1 IN 1 D); ORAL
     Route: 048
     Dates: start: 20050125, end: 20050306
  3. ALLOPURINOL [Suspect]
     Indication: HYPERURICAEMIA
     Dosage: 200 MG (200 MG, 1 IN 1 D); ORAL
     Route: 048
  4. MEDIATENSYL (URAPIDIL) [Suspect]
     Indication: HYPERTENSION
     Dosage: 40 MG (40 MG, 1 IN 1 D); ORAL
     Route: 048
  5. FUROSEMIDE [Suspect]
     Indication: HYPERTENSION
     Dosage: 40 MG (40 MG, 1 IN 1 D); ORAL
     Route: 048
  6. AMARYL [Suspect]
     Indication: DIABETES MELLITUS NON-INSULIN-DEPENDENT
     Dosage: 4 MG (4 MG 1 IN 1 D); ORAL, (1 IN 1 D); ORAL
     Route: 048
     Dates: end: 20050311
  7. AMARYL [Suspect]
     Indication: DIABETES MELLITUS NON-INSULIN-DEPENDENT
     Dosage: 4 MG (4 MG 1 IN 1 D); ORAL, (1 IN 1 D); ORAL
     Route: 048
     Dates: start: 20050315, end: 20050315
  8. KARDEGIC (ACETYLSALICYLATE LYSINE) [Concomitant]
  9. ZOFENIL (ZOFENOPRIL) [Concomitant]
  10. LEGALON (SILYBUM MARIANUM) [Concomitant]
  11. CIRKAN (CIRKAN) [Concomitant]
     Route: 048

REACTIONS (5)
  - HEPATITIS [None]
  - JAUNDICE [None]
  - METABOLIC ACIDOSIS [None]
  - OLIGURIA [None]
  - RENAL FAILURE [None]
